FAERS Safety Report 9212040 (Version 1)
Quarter: 2013Q2

REPORT INFORMATION
  Report Type: Spontaneous
  Country: US (occurrence: US)
  Receive Date: 20130404
  Receipt Date: 20130404
  Transmission Date: 20140414
  Serious: No
  Sender: FDA-Public Use
  Company Number: US-AMGEN-USASP2013017149

PATIENT
  Age: 72 Year
  Sex: Female

DRUGS (2)
  1. ENBREL [Suspect]
     Indication: RHEUMATOID ARTHRITIS
     Dosage: 50 MG, QWK
     Dates: start: 20120430
  2. ARAVA [Concomitant]
     Dosage: 100 MG, QD
     Dates: start: 201211, end: 20130221

REACTIONS (2)
  - Diarrhoea [Not Recovered/Not Resolved]
  - Musculoskeletal pain [Recovered/Resolved]
